FAERS Safety Report 7759173-5 (Version None)
Quarter: 2011Q3

REPORT INFORMATION
  Report Type: 
  Country: None (occurrence: None)
  Receive Date: 20110919
  Receipt Date: 20110916
  Transmission Date: 20111222
  Serious: Yes (Death)
  Sender: FDA-Public Use
  Company Number: PHFR2011GB05267

PATIENT
  Sex: Female

DRUGS (7)
  1. CLOZAPINE [Suspect]
     Indication: PARKINSON'S DISEASE
     Dosage: 50 MG/DAY
     Route: 048
     Dates: start: 20110118
  2. SINEMET CR [Concomitant]
     Dosage: 1/2 TABLET/DAY
     Route: 048
  3. CITALOPRAM HYDROBROMIDE [Concomitant]
     Dosage: 20 MG/DAY
     Route: 048
  4. MADOPAR [Concomitant]
     Dosage: 125 MG/DAY
     Route: 048
  5. STALEVO 100 [Concomitant]
     Dosage: 20 MG/DAY
  6. MOVIPREP [Concomitant]
     Dosage: 1 SACHET/DAY
     Route: 048
  7. OMEPRAZOLE [Concomitant]
     Dosage: 20 MG/DAY
     Route: 048

REACTIONS (2)
  - GASTROINTESTINAL CARCINOMA [None]
  - CEREBROVASCULAR ACCIDENT [None]
